FAERS Safety Report 11826785 (Version 2)
Quarter: 2015Q4

REPORT INFORMATION
  Report Type: Spontaneous
  Country: US (occurrence: US)
  Receive Date: 20151211
  Receipt Date: 20151221
  Transmission Date: 20160305
  Serious: Yes (Hospitalization)
  Sender: FDA-Public Use
  Company Number: US-PFIZER INC-2015418490

PATIENT
  Age: 22 Year
  Sex: Male

DRUGS (3)
  1. METHIMAZOLE. [Concomitant]
     Active Substance: METHIMAZOLE
     Dosage: 10 MG TWICE PER DAY
  2. PROPANOLOL HCL [Suspect]
     Active Substance: PROPRANOLOL HYDROCHLORIDE
     Dosage: 20 MG 3 TIMES PER DAY
  3. IOPANOIC ACID. [Concomitant]
     Active Substance: IOPANOIC ACID
     Dosage: 500 MG, 2X/DAY

REACTIONS (1)
  - Suicide attempt [Unknown]
